FAERS Safety Report 18729079 (Version 2)
Quarter: 2021Q1

REPORT INFORMATION
  Report Type: Report from Study
  Country: CO (occurrence: CO)
  Receive Date: 20210112
  Receipt Date: 20210119
  Transmission Date: 20210419
  Serious: Yes (Death, Hospitalization, Other)
  Sender: FDA-Public Use
  Company Number: NVSC2020CO343150

PATIENT
  Age: 61 Year
  Sex: Male
  Weight: 63 kg

DRUGS (1)
  1. REVOLADE [Suspect]
     Active Substance: ELTROMBOPAG OLAMINE
     Indication: IMMUNE THROMBOCYTOPENIA
     Dosage: 50 MG, Q24H
     Route: 048
     Dates: start: 20201220, end: 20201220

REACTIONS (4)
  - Platelet count decreased [Not Recovered/Not Resolved]
  - Haematuria [Recovered/Resolved]
  - Death [Fatal]
  - Thrombosis [Recovered/Resolved]

NARRATIVE: CASE EVENT DATE: 20201221
